FAERS Safety Report 23354637 (Version 1)
Quarter: 2024Q1

REPORT INFORMATION
  Report Type: Spontaneous
  Country: US (occurrence: US)
  Receive Date: 20240101
  Receipt Date: 20240101
  Transmission Date: 20240410
  Serious: No
  Sender: FDA-Public Use
  Company Number: US-SA-SAC20231227000806

PATIENT
  Sex: Female

DRUGS (1)
  1. DUPIXENT [Suspect]
     Active Substance: DUPILUMAB
     Indication: Asthma
     Dosage: 300MG/2ML UNDER THE SKIN FREQUENCY- EVERY 2 WEEKS
     Route: 058

REACTIONS (4)
  - Myalgia [Unknown]
  - Cardiac disorder [Unknown]
  - Limb discomfort [Unknown]
  - Muscle spasms [Unknown]
